FAERS Safety Report 22130157 (Version 2)
Quarter: 2023Q2

REPORT INFORMATION
  Report Type: Spontaneous
  Country: US (occurrence: US)
  Receive Date: 20230323
  Receipt Date: 20230411
  Transmission Date: 20230721
  Serious: No
  Sender: FDA-Public Use
  Company Number: US-Calliditas-2023CAL00248

PATIENT
  Age: 56 Year
  Sex: Female

DRUGS (4)
  1. TARPEYO [Suspect]
     Active Substance: BUDESONIDE
     Indication: IgA nephropathy
     Dosage: 16 MG (4 MG CAPSULES) ONCE DAILY
     Route: 048
     Dates: start: 20220524
  2. LOSARTAN [Concomitant]
     Active Substance: LOSARTAN
     Indication: Blood pressure measurement
  3. ATORVASTATIN [Concomitant]
     Active Substance: ATORVASTATIN
  4. FARXIGA [Concomitant]
     Active Substance: DAPAGLIFLOZIN PROPANEDIOL

REACTIONS (4)
  - Hirsutism [Not Recovered/Not Resolved]
  - Asthenia [Not Recovered/Not Resolved]
  - Nausea [Not Recovered/Not Resolved]
  - Product dose omission issue [Recovered/Resolved]

NARRATIVE: CASE EVENT DATE: 20220901
